FAERS Safety Report 9657774 (Version 4)
Quarter: 2015Q2

REPORT INFORMATION
  Report Type: Report from Study
  Country: US (occurrence: US)
  Receive Date: 20131030
  Receipt Date: 20150420
  Transmission Date: 20150821
  Serious: Yes (Hospitalization, Other)
  Sender: FDA-Public Use
  Company Number: US-ROCHE-1293459

PATIENT
  Age: 52 Year
  Sex: Female
  Weight: 65.83 kg

DRUGS (5)
  1. PROTONIX (UNITED STATES) [Concomitant]
     Indication: GASTROOESOPHAGEAL REFLUX DISEASE
  2. RITUXAN [Suspect]
     Active Substance: RITUXIMAB
     Indication: SCLERITIS
     Route: 042
     Dates: start: 201310, end: 201311
  3. RITUXAN [Suspect]
     Active Substance: RITUXIMAB
     Indication: UVEITIS
     Route: 042
     Dates: start: 20130910, end: 20131015
  4. RITUXAN [Suspect]
     Active Substance: RITUXIMAB
     Indication: EYE DISORDER
  5. RITUXAN [Suspect]
     Active Substance: RITUXIMAB
     Indication: EXTRAOCULAR MUSCLE DISORDER

REACTIONS (19)
  - Chills [Recovered/Resolved]
  - Swelling face [Recovered/Resolved]
  - Cyanosis [Recovered/Resolved]
  - Rash [Recovered/Resolved]
  - Off label use [Unknown]
  - Serum sickness [Recovered/Resolved]
  - Tremor [Recovered/Resolved]
  - Body temperature increased [Recovered/Resolved]
  - Loss of consciousness [Recovered/Resolved]
  - Enzyme abnormality [Recovered/Resolved]
  - Hepatic enzyme increased [Unknown]
  - Skin discolouration [Recovered/Resolved]
  - Pain [Unknown]
  - Rash [Unknown]
  - Pharyngeal oedema [Recovered/Resolved]
  - Back pain [Unknown]
  - Product quality issue [Unknown]
  - Yellow skin [Unknown]
  - Ear pruritus [Recovered/Resolved]

NARRATIVE: CASE EVENT DATE: 20130910
